FAERS Safety Report 18674877 (Version 2)
Quarter: 2022Q2

REPORT INFORMATION
  Report Type: Report from Study
  Country: IN (occurrence: IN)
  Receive Date: 20201229
  Receipt Date: 20220411
  Transmission Date: 20220720
  Serious: Yes (Hospitalization)
  Sender: FDA-Public Use
  Company Number: IN-NOVARTISPH-NVSC2020IN338807

PATIENT
  Age: 56 Year
  Sex: Male
  Weight: 58 kg

DRUGS (19)
  1. SIMULECT [Suspect]
     Active Substance: BASILIXIMAB
     Indication: Renal transplant
     Dosage: UNK
     Route: 065
     Dates: start: 20201208, end: 20201212
  2. TACROLIMUS [Concomitant]
     Active Substance: TACROLIMUS
     Indication: Product used for unknown indication
     Dosage: UNK UNK, BID (7AM-7PM)
     Route: 065
  3. MYCOPHENOLATE MOFETIL [Concomitant]
     Active Substance: MYCOPHENOLATE MOFETIL
     Indication: Product used for unknown indication
     Dosage: UNK, BID (7AM-7PM)
     Route: 065
  4. LEVOTHYROXINE [Concomitant]
     Active Substance: LEVOTHYROXINE
     Indication: Hypothyroidism
     Dosage: UNK, QD (EMPTY STOMACH 7 AM)
     Route: 065
  5. PREDNISOLONE [Concomitant]
     Active Substance: PREDNISOLONE
     Indication: Product used for unknown indication
     Dosage: UNK, QD (CONC: 5MG)
     Route: 065
  6. PREDNISOLONE [Concomitant]
     Active Substance: PREDNISOLONE
     Dosage: UNK, QD (CONC :25 MG) (9AM)
     Route: 065
  7. TORSEMIDE [Concomitant]
     Active Substance: TORSEMIDE
     Indication: Product used for unknown indication
     Dosage: UNK, QD (CONC: 20MG)
     Route: 065
  8. TORSEMIDE [Concomitant]
     Active Substance: TORSEMIDE
     Dosage: UNK, BID (CONC:10 MG)
     Route: 065
  9. SEPTRA DS [Concomitant]
     Active Substance: SULFAMETHOXAZOLE\TRIMETHOPRIM
     Indication: Product used for unknown indication
     Dosage: 1 DOSAGE FORM, Q2W
     Route: 065
  10. OFLOX OZ [Concomitant]
     Indication: Product used for unknown indication
     Dosage: UNK, BID (3 DAYS) (9AM -9PM)
     Route: 065
  11. SPORLAC DS [Concomitant]
     Indication: Product used for unknown indication
     Dosage: UNK, TID (3DAYS)(9 AM-3PM-9PM)
     Route: 065
  12. AMLODIPINE BESYLATE [Concomitant]
     Active Substance: AMLODIPINE BESYLATE
     Indication: Product used for unknown indication
     Dosage: UNK, QD (9AM)
     Route: 065
  13. TAMSULOSIN HYDROCHLORIDE [Concomitant]
     Active Substance: TAMSULOSIN HYDROCHLORIDE
     Indication: Product used for unknown indication
     Dosage: UNK, QD (BED TIME) (10PM)
     Route: 065
  14. DOMPERIDONE\ESOMEPRAZOLE MAGNESIUM [Concomitant]
     Active Substance: DOMPERIDONE\ESOMEPRAZOLE MAGNESIUM
     Indication: Product used for unknown indication
     Dosage: UNK, QD (9PM)
     Route: 065
  15. NEUROBION FORTE [Concomitant]
     Active Substance: CYANOCOBALAMIN\PYRIDOXINE HYDROCHLORIDE\THIAMINE DISULFIDE
     Indication: Product used for unknown indication
     Dosage: UNK, QD (10 AM)
     Route: 065
  16. FOLVITE [Concomitant]
     Active Substance: FOLIC ACID
     Indication: Product used for unknown indication
     Dosage: UNK, QD (3PM)
     Route: 065
  17. POTKLOR [Concomitant]
     Indication: Product used for unknown indication
     Dosage: UNK, TID (3 TSF) (9AM,3PM,9PM)
     Route: 065
  18. DOLO [Concomitant]
     Indication: Product used for unknown indication
     Dosage: UNK, BID (3 DAYS, 3 DAYS SOS) (10 AM -10PM)
     Route: 065
  19. ULTRACET [Concomitant]
     Active Substance: ACETAMINOPHEN\TRAMADOL HYDROCHLORIDE
     Indication: Product used for unknown indication
     Dosage: UNK (1/2 TAB FOR SEVERE PAIN)
     Route: 065

REACTIONS (8)
  - Renal tubular injury [Unknown]
  - Kidney transplant rejection [Unknown]
  - Pollakiuria [Unknown]
  - Lower urinary tract symptoms [Unknown]
  - Thrombotic microangiopathy [Unknown]
  - Blood creatinine decreased [Unknown]
  - Urinary hesitation [Unknown]
  - Delayed graft function [Unknown]

NARRATIVE: CASE EVENT DATE: 20201216
